FAERS Safety Report 8960244 (Version 1)
Quarter: 2012Q4

REPORT INFORMATION
  Report Type: 
  Country: AU (occurrence: AU)
  Receive Date: 20121211
  Receipt Date: 20121211
  Transmission Date: 20130627
  Serious: Yes (Hospitalization)
  Sender: FDA-Public Use
  Company Number: AU-B.I. PHARMACEUTICALS,INC./RIDGEFIELD-2012-AU-01721AU

PATIENT
  Sex: Female

DRUGS (3)
  1. TRAJENTA [Suspect]
     Dosage: 5 mg
     Dates: start: 201201, end: 20120924
  2. DIABEX [Concomitant]
  3. DIAMICRON [Concomitant]

REACTIONS (1)
  - Pancreatitis [Recovered/Resolved]
